FAERS Safety Report 19281643 (Version 1)
Quarter: 2021Q2

REPORT INFORMATION
  Report Type: Report from Study
  Country: None (occurrence: US)
  Receive Date: 20210521
  Receipt Date: 20210521
  Transmission Date: 20210717
  Serious: Yes (Hospitalization, Other)
  Sender: FDA-Public Use
  Company Number: US-ABBVIE-21K-163-3907703-00

PATIENT
  Age: 64 Year
  Sex: Female

DRUGS (2)
  1. HUMIRA [Suspect]
     Active Substance: ADALIMUMAB
     Indication: HIDRADENITIS
     Route: 058
  2. COVID?19 VACCINE NOS. [Concomitant]
     Active Substance: COVID-19 VACCINE NOS
     Indication: COVID-19 IMMUNISATION
     Route: 030

REACTIONS (6)
  - Vomiting [Recovering/Resolving]
  - Hospitalisation [Recovering/Resolving]
  - Hidradenitis [Unknown]
  - Surgery [Unknown]
  - Fasciitis [Recovering/Resolving]
  - Tobacco withdrawal symptoms [Recovering/Resolving]

NARRATIVE: CASE EVENT DATE: 202104
